FAERS Safety Report 9816694 (Version 2)
Quarter: 2014Q1

REPORT INFORMATION
  Report Type: Spontaneous
  Country: US (occurrence: US)
  Receive Date: 20140114
  Receipt Date: 20140131
  Transmission Date: 20141002
  Serious: No
  Sender: FDA-Public Use
  Company Number: US-GILEAD-2014-0092164

PATIENT
  Sex: Female

DRUGS (3)
  1. LETAIRIS [Suspect]
     Indication: PULMONARY HYPERTENSION
     Dosage: 10 MG, QD
     Route: 065
     Dates: start: 20131230
  2. LETAIRIS [Suspect]
     Indication: OBESITY
     Dosage: 5 MG, QOD
     Route: 065
  3. LETAIRIS [Suspect]
     Indication: PULMONARY EMBOLISM

REACTIONS (4)
  - Malaise [Unknown]
  - Decreased appetite [Unknown]
  - Nausea [Unknown]
  - Oropharyngeal pain [Unknown]
